FAERS Safety Report 9543826 (Version 4)
Quarter: 2013Q4

REPORT INFORMATION
  Report Type: Spontaneous
  Country: US (occurrence: US)
  Receive Date: 20130923
  Receipt Date: 20131021
  Transmission Date: 20140711
  Serious: Yes (Death, Other)
  Sender: FDA-Public Use
  Company Number: US-GILEAD-2013-0083851

PATIENT
  Sex: Female
  Weight: 58.96 kg

DRUGS (8)
  1. LETAIRIS [Suspect]
     Indication: PULMONARY HYPERTENSION
     Dosage: 10 MG, QD
     Dates: start: 20121024
  2. LETAIRIS [Suspect]
     Indication: INTERSTITIAL LUNG DISEASE
  3. ADCIRCA [Concomitant]
  4. CRESTOR [Concomitant]
  5. FOSAMAX [Concomitant]
  6. FUROSEMIDE [Concomitant]
  7. OXYGEN [Concomitant]
  8. MVI                                /01825701/ [Concomitant]

REACTIONS (3)
  - Condition aggravated [Fatal]
  - Interstitial lung disease [Fatal]
  - Pulmonary hypertension [Fatal]
